FAERS Safety Report 19353296 (Version 2)
Quarter: 2021Q2

REPORT INFORMATION
  Report Type: Spontaneous
  Country: ES (occurrence: ES)
  Receive Date: 20210531
  Receipt Date: 20210615
  Transmission Date: 20210717
  Serious: Yes (Death, Hospitalization, Other)
  Sender: FDA-Public Use
  Company Number: ES-ALXN-A202106170

PATIENT
  Age: 49 Year
  Sex: Male

DRUGS (1)
  1. SOLIRIS [Suspect]
     Active Substance: ECULIZUMAB
     Indication: ATYPICAL HAEMOLYTIC URAEMIC SYNDROME
     Dosage: RECIEVED 3 VIALS OF ECULIZUMAB ON THE FIRST AND 2 VIALS AFTER PLASMA EXCHANGE, A TOTAL OF 5 VIALS
     Route: 065
     Dates: start: 20210413

REACTIONS (4)
  - Metastatic neoplasm [Unknown]
  - Death [Fatal]
  - Intestinal obstruction [Unknown]
  - Gastrointestinal cancer metastatic [Unknown]

NARRATIVE: CASE EVENT DATE: 2021
